FAERS Safety Report 17602078 (Version 1)
Quarter: 2020Q1

REPORT INFORMATION
  Report Type: Spontaneous
  Country: US (occurrence: US)
  Receive Date: 20200331
  Receipt Date: 20200331
  Transmission Date: 20200409
  Serious: No
  Sender: FDA-Public Use
  Company Number: US-ASTRAZENECA-2020SE35609

PATIENT
  Sex: Female

DRUGS (1)
  1. BEVESPI AEROSPHERE [Suspect]
     Active Substance: FORMOTEROL FUMARATE\GLYCOPYRROLATE
     Indication: BRONCHIECTASIS
     Dosage: 9MCG-4.8MCG TWO PUFFS,TWICE A DAY
     Route: 055

REACTIONS (6)
  - Candida infection [Unknown]
  - Intentional device misuse [Not Recovered/Not Resolved]
  - Device failure [Unknown]
  - Stomatitis [Unknown]
  - Wrong technique in device usage process [Not Recovered/Not Resolved]
  - Drug delivery system malfunction [Unknown]
